FAERS Safety Report 9185947 (Version 2)
Quarter: 2013Q2

REPORT INFORMATION
  Report Type: Spontaneous
  Country: JP (occurrence: JP)
  Receive Date: 20130325
  Receipt Date: 20130408
  Transmission Date: 20140414
  Serious: Yes (Hospitalization)
  Sender: FDA-Public Use
  Company Number: JP-ASTRAZENECA-2013SE17531

PATIENT
  Age: 70 Year
  Sex: Female

DRUGS (2)
  1. FASLODEX [Suspect]
     Indication: BREAST CANCER
     Route: 030
     Dates: start: 20130304, end: 20130306
  2. FASLODEX [Suspect]
     Indication: BREAST CANCER
     Route: 058
     Dates: start: 20130304, end: 20130306

REACTIONS (3)
  - Injection site necrosis [Recovered/Resolved]
  - Injection site ulcer [Unknown]
  - Incorrect route of drug administration [Unknown]
